FAERS Safety Report 7107591-0 (Version None)
Quarter: 2010Q4

REPORT INFORMATION
  Report Type: 
  Country: None (occurrence: None)
  Receive Date: 20101117
  Receipt Date: 20101109
  Transmission Date: 20110411
  Serious: Yes (Other)
  Sender: FDA-Public Use
  Company Number: US-US-EMD SERONO, INC.-239081K09USA

PATIENT
  Sex: Female

DRUGS (4)
  1. REBIF [Suspect]
     Indication: MULTIPLE SCLEROSIS
     Route: 058
     Dates: start: 20090303, end: 20091001
  2. REBIF [Suspect]
     Dates: start: 20100827
  3. WELLBUTRIN [Concomitant]
     Indication: DEPRESSION
     Route: 065
  4. UNSPECIFIED MEDICATION [Concomitant]
     Indication: PREMEDICATION
     Route: 065

REACTIONS (3)
  - BLOOD GLUCOSE INCREASED [None]
  - CHOLECYSTITIS INFECTIVE [None]
  - HEPATIC ENZYME INCREASED [None]
